FAERS Safety Report 10683714 (Version 5)
Quarter: 2017Q2

REPORT INFORMATION
  Report Type: Spontaneous
  Country: US (occurrence: US)
  Receive Date: 20141230
  Receipt Date: 20170601
  Transmission Date: 20170829
  Serious: Yes (Hospitalization, Disabling, Other)
  Sender: FDA-Public Use
  Company Number: US-009507513-1204USA03739

PATIENT
  Sex: Male
  Weight: 100.23 kg

DRUGS (4)
  1. PROPECIA [Suspect]
     Active Substance: FINASTERIDE
     Indication: ALOPECIA
     Dosage: 1 MG, QOD
     Route: 048
     Dates: start: 20060110, end: 2009
  2. CIPRO [Concomitant]
     Active Substance: CIPROFLOXACIN HYDROCHLORIDE
     Indication: PRODUCT USED FOR UNKNOWN INDICATION
     Dosage: 500 MG, UNK
     Route: 065
     Dates: start: 20070403
  3. IBUPROFEN. [Concomitant]
     Active Substance: IBUPROFEN
     Indication: PRODUCT USED FOR UNKNOWN INDICATION
     Dosage: UNK
     Route: 065
     Dates: start: 200704
  4. CIPROFLOXACIN. [Concomitant]
     Active Substance: CIPROFLOXACIN
     Indication: PRODUCT USED FOR UNKNOWN INDICATION
     Dosage: UNK
     Route: 065
     Dates: start: 200704, end: 200811

REACTIONS (38)
  - Libido decreased [Not Recovered/Not Resolved]
  - Asthenia [Unknown]
  - Back pain [Unknown]
  - Penis disorder [Unknown]
  - Penis disorder [Unknown]
  - Road traffic accident [Unknown]
  - Prostatitis [Unknown]
  - Oropharyngeal pain [Unknown]
  - Thrombophlebitis [Unknown]
  - Pharyngitis streptococcal [Unknown]
  - Sexual dysfunction [Not Recovered/Not Resolved]
  - Depression [Not Recovered/Not Resolved]
  - Venous operation [Unknown]
  - Fatigue [Unknown]
  - Pain [Unknown]
  - Varicose vein [Unknown]
  - Inappropriate schedule of drug administration [Unknown]
  - Inguinal hernia [Unknown]
  - Cognitive disorder [Not Recovered/Not Resolved]
  - Ejaculation failure [Not Recovered/Not Resolved]
  - Prostatic atrophy [Unknown]
  - Dyspareunia [Recovered/Resolved]
  - Anxiety [Not Recovered/Not Resolved]
  - Genital disorder male [Unknown]
  - Injury [Unknown]
  - Erectile dysfunction [Not Recovered/Not Resolved]
  - Epididymitis [Unknown]
  - Venous recanalisation [Unknown]
  - Hydrocele [Unknown]
  - Back pain [Unknown]
  - Sinusitis [Unknown]
  - Ejaculation disorder [Not Recovered/Not Resolved]
  - Urine flow decreased [Unknown]
  - Infection [Unknown]
  - Sinusitis [Unknown]
  - Cold sweat [Unknown]
  - Epididymitis [Not Recovered/Not Resolved]
  - Acrochordon [Unknown]

NARRATIVE: CASE EVENT DATE: 200704
